FAERS Safety Report 4608955-7 (Version None)
Quarter: 2005Q1

REPORT INFORMATION
  Report Type: 
  Country: None (occurrence: None)
  Receive Date: 20050310
  Receipt Date: 20050222
  Transmission Date: 20050727
  Serious: Yes (Other)
  Sender: FDA-Public Use
  Company Number: 26316

PATIENT
  Age: 55 Year
  Sex: Male

DRUGS (1)
  1. ALDARA [Suspect]
     Indication: ACTINIC KERATOSIS
     Dosage: 1 SACHET (1 SACHET, 3 IN 1 WEEK(S))
     Route: 061
     Dates: start: 20040901, end: 20041013

REACTIONS (3)
  - CHRONIC LYMPHOCYTIC LEUKAEMIA [None]
  - FATIGUE [None]
  - WHITE BLOOD CELL COUNT INCREASED [None]
